FAERS Safety Report 4689253-2 (Version None)
Quarter: 2005Q2

REPORT INFORMATION
  Report Type: 
  Country: None (occurrence: None)
  Receive Date: 20050613
  Receipt Date: 20050310
  Transmission Date: 20051028
  Serious: Yes (Hospitalization, Disabling)
  Sender: FDA-Public Use
  Company Number: US-MERCK-0503USA02215

PATIENT
  Age: 49 Year
  Sex: Male
  Weight: 82 kg

DRUGS (6)
  1. VIOXX [Suspect]
     Indication: SPINAL COLUMN STENOSIS
     Route: 048
     Dates: start: 20010101
  2. VIOXX [Suspect]
     Route: 048
     Dates: start: 20021201, end: 20041001
  3. VIOXX [Suspect]
     Indication: ARTHRITIS
     Route: 048
     Dates: start: 20000306
  4. VIOXX [Suspect]
     Route: 048
     Dates: start: 20010101
  5. VIOXX [Suspect]
     Route: 048
     Dates: start: 20021201, end: 20041001
  6. VIOXX [Suspect]
     Route: 048
     Dates: start: 20000306

REACTIONS (28)
  - ACUTE MYOCARDIAL INFARCTION [None]
  - AKINESIA [None]
  - ANGINA PECTORIS [None]
  - ARTERIAL DISORDER [None]
  - BLOOD CALCIUM INCREASED [None]
  - BLOOD PHOSPHORUS INCREASED [None]
  - CARDIAC DISORDER [None]
  - CARDIAC FAILURE CONGESTIVE [None]
  - CHEST WALL PAIN [None]
  - CORONARY ARTERY DISEASE [None]
  - CORONARY ARTERY OCCLUSION [None]
  - CORONARY ARTERY STENOSIS [None]
  - COSTOCHONDRITIS [None]
  - DILATATION ATRIAL [None]
  - EMOTIONAL DISTRESS [None]
  - GASTROOESOPHAGEAL REFLUX DISEASE [None]
  - HAEMOGLOBIN DECREASED [None]
  - HYPERTENSION [None]
  - ILIAC ARTERY STENOSIS [None]
  - ILIAC ARTERY THROMBOSIS [None]
  - INTERMITTENT CLAUDICATION [None]
  - LIPOMA [None]
  - MYOCARDIAL INFARCTION [None]
  - PERIPHERAL VASCULAR DISORDER [None]
  - PROSTATE CANCER [None]
  - RALES [None]
  - SCROTAL HAEMATOMA [None]
  - VENTRICULAR DYSFUNCTION [None]
